FAERS Safety Report 10361206 (Version 7)
Quarter: 2015Q4

REPORT INFORMATION
  Report Type: Spontaneous
  Country: US (occurrence: None)
  Receive Date: 20140731
  Receipt Date: 20151207
  Transmission Date: 20160304
  Serious: Yes (Life-Threatening, Hospitalization, Other)
  Sender: FDA-Public Use
  Company Number: ADR-2014-01328

PATIENT
  Age: 62 Year
  Sex: Female

DRUGS (2)
  1. CLONIDINE (INTRATHECAL) 300.0MCG/ML [Suspect]
     Active Substance: CLONIDINE
     Indication: PAIN
     Dosage: 106.23 MCG/DAY
  2. BACLOFEN INTRATHECAL 300.0MCG/ML [Suspect]
     Active Substance: BACLOFEN
     Indication: PAIN
     Dosage: 106.23 MCG/DAY

REACTIONS (28)
  - Soft tissue inflammation [None]
  - Performance status decreased [None]
  - Respiratory arrest [None]
  - Sleep apnoea syndrome [None]
  - Hypersomnia [None]
  - Fatigue [None]
  - Back pain [None]
  - Incision site infection [None]
  - Pain [None]
  - Medical device discomfort [None]
  - Sepsis [None]
  - Hypoacusis [None]
  - Visual impairment [None]
  - Pain in extremity [None]
  - Fall [None]
  - PCO2 increased [None]
  - Poor quality sleep [None]
  - Narcolepsy [None]
  - Unevaluable event [None]
  - Psychomotor hyperactivity [None]
  - Arthralgia [None]
  - Overdose [None]
  - Sleep disorder [None]
  - Decreased appetite [None]
  - Somnolence [None]
  - Cardiac arrest [None]
  - Insomnia [None]
  - Aphasia [None]
